FAERS Safety Report 6000531-7 (Version None)
Quarter: 2008Q4

REPORT INFORMATION
  Report Type: 
  Country: None (occurrence: None)
  Receive Date: 20081215
  Receipt Date: 20080721
  Transmission Date: 20090506
  Serious: No
  Sender: FDA-Public Use
  Company Number: US-BAYER-200814542BCC

PATIENT
  Sex: Male
  Weight: 61 kg

DRUGS (4)
  1. ALEVE [Suspect]
     Indication: DRUG USE FOR UNKNOWN INDICATION
     Dosage: UNIT DOSE: 220 MG
     Route: 048
     Dates: start: 20080718
  2. SYNTHROID [Concomitant]
  3. ADDERALL 10 [Concomitant]
  4. PREMHEART [Concomitant]

REACTIONS (1)
  - NO ADVERSE EVENT [None]
